FAERS Safety Report 8374371-8 (Version None)
Quarter: 2012Q2

REPORT INFORMATION
  Report Type: 
  Country: None (occurrence: None)
  Receive Date: 20120521
  Receipt Date: 20120515
  Transmission Date: 20120825
  Serious: Yes (Life-Threatening, Hospitalization)
  Sender: FDA-Public Use
  Company Number: US-BAYER-2012-020402

PATIENT
  Age: 53 Year
  Sex: Female
  Weight: 77.098 kg

DRUGS (9)
  1. METFORMIN HCL [Concomitant]
     Indication: TYPE 2 DIABETES MELLITUS
     Dosage: 500 MG, UNK
     Route: 048
  2. ENALAPRIL MALEATE [Concomitant]
     Dosage: 20 MG, BID
     Route: 048
  3. YASMIN [Suspect]
     Indication: CONTRACEPTION
     Dosage: UNK
     Dates: start: 20060909, end: 20061016
  4. YASMIN [Suspect]
     Indication: MENOMETRORRHAGIA
  5. IBUPROFEN [Concomitant]
     Dosage: 200 MG, TID
     Route: 048
  6. PHENERGAN [Concomitant]
     Dosage: UNK UNK, PRN
  7. HYOSCYAMINE [Concomitant]
     Indication: IRRITABLE BOWEL SYNDROME
     Dosage: 0.375 MG, UNK
     Route: 048
  8. HYDROCHLOROTHIAZIDE [Concomitant]
     Dosage: 25 MG, QD
     Route: 048
  9. RANITIDINE [Concomitant]

REACTIONS (1)
  - PULMONARY EMBOLISM [None]
